FAERS Safety Report 19754621 (Version 4)
Quarter: 2021Q3

REPORT INFORMATION
  Report Type: Report from Study
  Country: CL (occurrence: CL)
  Receive Date: 20210827
  Receipt Date: 20210921
  Transmission Date: 20211014
  Serious: Yes (Hospitalization)
  Sender: FDA-Public Use
  Company Number: CL-EISAI MEDICAL RESEARCH-EC-2021-098562

PATIENT
  Age: 55 Year
  Sex: Male
  Weight: 97 kg

DRUGS (13)
  1. LENVATINIB [Suspect]
     Active Substance: LENVATINIB
     Indication: HEPATOCELLULAR CARCINOMA
     Route: 048
     Dates: start: 20210601
  2. DOMPERIDONE [Concomitant]
     Active Substance: DOMPERIDONE
     Dates: start: 20210716, end: 20210817
  3. OMEPRAZOLE. [Concomitant]
     Active Substance: OMEPRAZOLE
     Dates: start: 20210729
  4. METFORMIN [Concomitant]
     Active Substance: METFORMIN HYDROCHLORIDE
     Dates: start: 201101
  5. PROPANOLOL [Concomitant]
     Active Substance: PROPRANOLOL HYDROCHLORIDE
     Dates: start: 201901
  6. PEMBROLIZUMAB. [Suspect]
     Active Substance: PEMBROLIZUMAB
     Indication: HEPATOCELLULAR CARCINOMA
     Route: 041
     Dates: start: 20210601, end: 20210601
  7. PREDNISONE. [Concomitant]
     Active Substance: PREDNISONE
     Dates: start: 20210811, end: 20210817
  8. INSULINE NPH [Concomitant]
     Active Substance: INSULIN PORK\INSULIN PURIFIED PORK
     Route: 030
     Dates: start: 201901
  9. PREDNISONE. [Concomitant]
     Active Substance: PREDNISONE
     Dates: start: 20210729, end: 20210803
  10. PREDNISONE. [Concomitant]
     Active Substance: PREDNISONE
  11. ATORVASTATIN [Concomitant]
     Active Substance: ATORVASTATIN
     Dates: start: 201901
  12. SPIRONOLACTONE. [Concomitant]
     Active Substance: SPIRONOLACTONE
     Dates: start: 202101
  13. DABIGATRAN [Concomitant]
     Active Substance: DABIGATRAN
     Dates: start: 20210613

REACTIONS (1)
  - Urinary tract infection [Recovered/Resolved]

NARRATIVE: CASE EVENT DATE: 20210817
